FAERS Safety Report 13210744 (Version 1)
Quarter: 2017Q1

REPORT INFORMATION
  Report Type: Spontaneous
  Country: US (occurrence: US)
  Receive Date: 20170209
  Receipt Date: 20170209
  Transmission Date: 20170428
  Serious: Yes (Hospitalization, Disabling, Other)
  Sender: FDA-Public Use
  Company Number: None

PATIENT
  Age: 46 Year
  Sex: Female
  Weight: 85.5 kg

DRUGS (1)
  1. ZOCOR [Suspect]
     Active Substance: SIMVASTATIN
     Indication: BLOOD CHOLESTEROL INCREASED
     Dosage: ?          QUANTITY:1 TABLET(S);?
     Route: 048
     Dates: start: 20160201, end: 20170202

REACTIONS (7)
  - Renal haemorrhage [None]
  - General physical health deterioration [None]
  - Confusional state [None]
  - Amnesia [None]
  - Arrhythmia [None]
  - Oxygen saturation decreased [None]
  - Cerebral disorder [None]

NARRATIVE: CASE EVENT DATE: 20160202
